FAERS Safety Report 11266918 (Version 1)
Quarter: 2015Q3

REPORT INFORMATION
  Report Type: Report from Study
  Country: NL (occurrence: NL)
  Receive Date: 20150713
  Receipt Date: 20150713
  Transmission Date: 20151125
  Serious: Yes (Death)
  Sender: FDA-Public Use
  Company Number: NL-CELGENE-NLD-2015072218

PATIENT
  Sex: Female

DRUGS (3)
  1. ABRAXANE [Suspect]
     Active Substance: PACLITAXEL
     Indication: PANCREATIC CARCINOMA
     Route: 041
     Dates: start: 20140428, end: 20141006
  2. GEMCITABINE [Suspect]
     Active Substance: GEMCITABINE\GEMCITABINE HYDROCHLORIDE
     Indication: PANCREATIC CARCINOMA
     Route: 065
     Dates: start: 20140428, end: 20141006
  3. LDE225 [Suspect]
     Active Substance: ERISMODEGIB
     Indication: PANCREATIC CARCINOMA
     Route: 065
     Dates: start: 20140428, end: 20141006

REACTIONS (1)
  - Death [Fatal]

NARRATIVE: CASE EVENT DATE: 20141126
